FAERS Safety Report 14770394 (Version 2)
Quarter: 2018Q3

REPORT INFORMATION
  Report Type: Report from Study
  Country: ES (occurrence: ES)
  Receive Date: 20180417
  Receipt Date: 20180702
  Transmission Date: 20181010
  Serious: Yes (Hospitalization)
  Sender: FDA-Public Use
  Company Number: ES-PFIZER INC-2018153415

PATIENT
  Age: 6 Month
  Sex: Female
  Weight: 6.8 kg

DRUGS (6)
  1. FOLINATO CALCICO [Concomitant]
     Active Substance: LEUCOVORIN CALCIUM
     Indication: PROPHYLAXIS
     Dosage: 6 MG, 1X/DAY
     Route: 042
     Dates: start: 20170922, end: 20170924
  2. MERCAPTOPURINA [Suspect]
     Active Substance: MERCAPTOPURINE
     Indication: ACUTE LYMPHOCYTIC LEUKAEMIA
     Dosage: 17 MG, 1X/DAY
     Route: 048
     Dates: start: 20170920, end: 20170927
  3. ZOVIRAX [Concomitant]
     Active Substance: ACYCLOVIR
     Indication: PROPHYLAXIS
     Dosage: 60 MG, 3X/DAY (EVERY 8 HOURS)
     Route: 048
     Dates: start: 20170606
  4. SEPTRIN PAEDIATRIC [Concomitant]
     Active Substance: SULFAMETHOXAZOLE\TRIMETHOPRIM
     Indication: PROPHYLAXIS
     Dosage: 1.25 MG, EVERY 12 HOURS
     Route: 048
     Dates: start: 20170606
  5. METHOTREXATE SODIUM. [Suspect]
     Active Substance: METHOTREXATE SODIUM
     Indication: ACUTE LYMPHOCYTIC LEUKAEMIA
     Dosage: 1067 MG, 1X/DAY
     Route: 042
     Dates: start: 20170920, end: 20170921
  6. COLECALCIFEROL [Concomitant]
     Active Substance: CHOLECALCIFEROL
     Indication: PROPHYLAXIS
     Dosage: 6 GTT, 1X/DAY
     Route: 048
     Dates: start: 20170606

REACTIONS (2)
  - Hypertransaminasaemia [Recovered/Resolved]
  - Rash papular [Recovered/Resolved]

NARRATIVE: CASE EVENT DATE: 20170925
